FAERS Safety Report 18968958 (Version 1)
Quarter: 2021Q1

REPORT INFORMATION
  Report Type: Spontaneous
  Country: US (occurrence: US)
  Receive Date: 20210304
  Receipt Date: 20210304
  Transmission Date: 20210420
  Serious: No
  Sender: FDA-Public Use
  Company Number: US-VYERA PHARMACEUTICALS, LLC-2020VYE00028

PATIENT
  Age: 70 Year
  Sex: Female
  Weight: 80.73 kg

DRUGS (14)
  1. DARAPRIM [Suspect]
     Active Substance: PYRIMETHAMINE
     Indication: EYE INFECTION TOXOPLASMAL
     Dosage: UNK
     Dates: start: 20191108, end: 202001
  2. XANAX [Concomitant]
     Active Substance: ALPRAZOLAM
     Dosage: 1 TABLETS, 1X/DAY
  3. CLINDAMYCIN. [Concomitant]
     Active Substance: CLINDAMYCIN
     Dosage: 3 CAPSULES, 4X/DAY
     Route: 048
  4. OTC ASPIRIN [Concomitant]
     Dosage: 81 MG, 1X/DAY
  5. LYRICA [Concomitant]
     Active Substance: PREGABALIN
     Dosage: 75 MG, 2X/DAY
  6. SERTRALINE [Concomitant]
     Active Substance: SERTRALINE HYDROCHLORIDE
     Dosage: 100 MG, 1X/DAY
  7. NORCO [Concomitant]
     Active Substance: ACETAMINOPHEN\HYDROCODONE BITARTRATE
     Dosage: 1 DOSAGE UNITS, AS NEEDED
  8. DARAPRIM [Suspect]
     Active Substance: PYRIMETHAMINE
     Dosage: 100 MG, 2X/DAY
     Dates: start: 20200312, end: 20200312
  9. DILTIAZEM HYDROCHLORIDE ER [Concomitant]
     Active Substance: DILTIAZEM HYDROCHLORIDE
     Dosage: 120 MG, 1X/DAY
  10. DARAPRIM [Suspect]
     Active Substance: PYRIMETHAMINE
     Dosage: 25 MG, 2X/DAY
     Dates: start: 20200313
  11. LEUCOVORIN. [Concomitant]
     Active Substance: LEUCOVORIN
     Dosage: 1 TABLETS, 2X/WEEK
  12. LOSARTAN HYDROCHLORIDE [Concomitant]
     Dosage: UNK, 1X/DAY
  13. TRAZODONE [Concomitant]
     Active Substance: TRAZODONE HYDROCHLORIDE
     Dosage: 1 TABLETS, 1X/DAY
  14. PRILOSEC OTC [Concomitant]
     Active Substance: OMEPRAZOLE MAGNESIUM
     Dosage: 20 MG, 1X/DAY

REACTIONS (8)
  - Balance disorder [Not Recovered/Not Resolved]
  - Memory impairment [Not Recovered/Not Resolved]
  - Fall [Not Recovered/Not Resolved]
  - Parkinsonism [Not Recovered/Not Resolved]
  - Muscular weakness [Not Recovered/Not Resolved]
  - Feeling abnormal [Not Recovered/Not Resolved]
  - Gait disturbance [Not Recovered/Not Resolved]
  - Cerebral disorder [Not Recovered/Not Resolved]

NARRATIVE: CASE EVENT DATE: 202004
